FAERS Safety Report 15126680 (Version 3)
Quarter: 2019Q2

REPORT INFORMATION
  Report Type: Report from Study
  Country: DE (occurrence: DE)
  Receive Date: 20180710
  Receipt Date: 20190513
  Transmission Date: 20190711
  Serious: Yes (Hospitalization, Other)
  Sender: FDA-Public Use
  Company Number: DE-PFIZER INC-2018269605

PATIENT
  Age: 70 Year
  Sex: Female
  Weight: 75 kg

DRUGS (40)
  1. 5-FU [Suspect]
     Active Substance: FLUOROURACIL
     Dosage: EXCEPT ON 16DEC2013 DOSE WAS 712 MG
     Route: 040
     Dates: start: 20131007, end: 20140225
  2. AVASTIN [Suspect]
     Active Substance: BEVACIZUMAB
     Indication: COLON CANCER
     Dosage: 370 - 325 MG EVERY 2 WEEKS
     Route: 042
     Dates: start: 20131007, end: 20140708
  3. LYRICA [Concomitant]
     Active Substance: PREGABALIN
     Indication: PAIN
     Dosage: 100 MG, 1X/DAY
     Route: 048
     Dates: start: 20141128
  4. SIMVASTATIN. [Concomitant]
     Active Substance: SIMVASTATIN
     Indication: HYPERCHOLESTEROLAEMIA
     Dosage: 1 DF, 1X/DAY
     Route: 048
     Dates: start: 20130902, end: 20140414
  5. ALLOPURINOL. [Concomitant]
     Active Substance: ALLOPURINOL
     Indication: HYPERURICAEMIA
     Route: 048
     Dates: start: 20140902
  6. 5-FU [Suspect]
     Active Substance: FLUOROURACIL
     Dosage: DAILY DOSE: 4344 MG EVERY 2 WEEKS
     Route: 041
     Dates: start: 20131007, end: 20140225
  7. ZOFRAN [Concomitant]
     Active Substance: ONDANSETRON HYDROCHLORIDE
     Indication: NAUSEA
     Dosage: MAX, AS REQUIRED
     Route: 048
     Dates: start: 20131216
  8. VERGENTAN [Concomitant]
     Active Substance: ALIZAPRIDE HYDROCHLORIDE
     Indication: NAUSEA
     Dosage: ON D2 OF EACH CYCLE
     Route: 048
     Dates: start: 20131007
  9. DEXAMETHASON [Concomitant]
     Active Substance: DEXAMETHASONE
     Indication: VOMITING
  10. IRINOTECAN HCL [Suspect]
     Active Substance: IRINOTECAN HYDROCHLORIDE
     Indication: COLON CANCER
     Dosage: 247.7 - 326 MG; 216 - 326 MG
     Route: 042
     Dates: start: 20131007, end: 20140708
  11. 5-FU [Suspect]
     Active Substance: FLUOROURACIL
     Indication: COLON CANCER
     Dosage: 4128 MG, UNK
     Route: 041
     Dates: start: 20140310, end: 20140709
  12. 5-FU [Concomitant]
     Active Substance: FLUOROURACIL
     Indication: COLON CANCER
     Dosage: EXCEPT ON 10MAR2014 : 688 MG
     Route: 040
     Dates: end: 20140310
  13. FORTECORTIN [Concomitant]
     Active Substance: DEXAMETHASONE
     Indication: NAUSEA
     Dosage: BEFORE CHEMOTHERAPY
     Route: 042
     Dates: start: 20131007
  14. KEVATRIL [Concomitant]
     Active Substance: GRANISETRON HYDROCHLORIDE
     Indication: NAUSEA
     Dosage: BEFORE CHEMOTHERAPY
     Route: 042
     Dates: start: 20131007
  15. 5-FU [Suspect]
     Active Substance: FLUOROURACIL
     Dosage: 724 MG, UNK
     Route: 040
     Dates: start: 20130310
  16. 5-FU [Concomitant]
     Active Substance: FLUOROURACIL
     Dosage: ON 14APR2014: 113.8 MG
     Route: 040
     Dates: start: 20140310, end: 20140708
  17. BISOPROLOL [Concomitant]
     Active Substance: BISOPROLOL
     Indication: HYPERTENSION
     Dosage: DAILY DOSE: 2.5 MG EVERY DAYS
     Route: 048
     Dates: start: 20130101
  18. 5-FU [Suspect]
     Active Substance: FLUOROURACIL
     Dosage: DAILY DOSE: 113.8 MG EVERY 2 WEEKS
     Route: 040
     Dates: start: 20140414, end: 20140414
  19. ATROPIN [Concomitant]
     Active Substance: ATROPINE
     Indication: CHOLINERGIC SYNDROME
     Dosage: BEFORE IRINOTECAN
     Route: 058
     Dates: start: 20131007
  20. VOMEX [Concomitant]
     Active Substance: DIMENHYDRINATE
     Indication: NAUSEA
     Dosage: 1 DF, UNK
     Route: 054
     Dates: start: 20131007
  21. ALOXI [Concomitant]
     Active Substance: PALONOSETRON HYDROCHLORIDE
     Indication: NAUSEA
  22. IMODIUM [Concomitant]
     Active Substance: LOPERAMIDE HYDROCHLORIDE
     Indication: DIARRHOEA
     Dosage: 1 DF, UNK
     Route: 054
     Dates: start: 20140303
  23. FORTIMEL [Concomitant]
     Active Substance: DIETARY SUPPLEMENT
     Indication: WEIGHT DECREASED
     Dosage: DAILY DOSE: 1 DOSAGE FORM EVERY DAYS
     Route: 048
     Dates: start: 20140424
  24. PREDNISOLON [Concomitant]
     Active Substance: PREDNISOLONE
     Indication: FIBROMYALGIA
     Dosage: DAILY DOSE: 5 MG EVERY DAYS
     Route: 048
     Dates: start: 20130902
  25. 5-FU [Suspect]
     Active Substance: FLUOROURACIL
     Dosage: 688 MG, UNK
     Route: 040
     Dates: start: 20140506, end: 20140708
  26. 5-FU [Concomitant]
     Active Substance: FLUOROURACIL
     Dosage: DAILY DOSE: 4128 MG EVERY 2 WEEKS
     Route: 041
     Dates: start: 20140310, end: 20140709
  27. DEXAMETHASON [Concomitant]
     Active Substance: DEXAMETHASONE
     Indication: NAUSEA
     Dosage: DAILY DOSE: 8 MG MILLGRAM(S) EVERY DAYS
     Route: 048
     Dates: start: 20140224, end: 20140228
  28. MCP [Concomitant]
     Active Substance: METOCLOPRAMIDE HYDROCHLORIDE
     Dosage: AS REQUIRED
     Route: 048
     Dates: start: 20140210
  29. CIPROFLOXACIN. [Concomitant]
     Active Substance: CIPROFLOXACIN
     Indication: CYSTITIS
     Dosage: DAILY DOSE: 500 MG EVERY DAYS
     Route: 042
     Dates: start: 20140414, end: 20140419
  30. PREDNISOLON [Concomitant]
     Active Substance: PREDNISOLONE
     Indication: WEIGHT DECREASED
     Dosage: UNK
     Route: 048
     Dates: start: 20140723
  31. CALCIUM FOLINATE [Suspect]
     Active Substance: LEUCOVORIN CALCIUM
     Indication: COLON CANCER
     Dosage: 724 - 688 MG EVERY 2 WEEKS
     Route: 042
     Dates: start: 20131007, end: 20140708
  32. 5-FU [Suspect]
     Active Substance: FLUOROURACIL
     Dosage: DAILY DOSE: 688 MG EVERY 2 WEEKS
     Route: 040
     Dates: start: 20140324, end: 20140324
  33. VOMEX [Concomitant]
     Active Substance: DIMENHYDRINATE
     Dosage: 50 MG, AS NEEDED
     Route: 054
     Dates: start: 20140610
  34. DICLOFENAC [Concomitant]
     Active Substance: DICLOFENAC
     Dosage: UNK, AS NEEDED
     Route: 048
     Dates: start: 20140723
  35. PROPAFENON [Concomitant]
     Active Substance: PROPAFENONE
     Indication: TACHYARRHYTHMIA
     Dosage: DAILY DOSE: 300 MG EVERY DAYS
     Route: 048
     Dates: start: 20130902
  36. FORTECORTIN [Concomitant]
     Active Substance: DEXAMETHASONE
     Indication: VOMITING
     Dosage: DAY 2 TO DAY 5 AFTER CHEMOTHERAPY
     Route: 048
     Dates: start: 20140414
  37. ALOXI [Concomitant]
     Active Substance: PALONOSETRON HYDROCHLORIDE
     Indication: VOMITING
     Dosage: BEFORE CHEMOTHERAPY FROM CYCLE 10
     Route: 042
     Dates: start: 20140224, end: 20140708
  38. ASPIRIN. [Concomitant]
     Active Substance: ASPIRIN
     Indication: ATRIAL FIBRILLATION
     Dosage: DAILY DOSE: 100 MG EVERY DAYS
     Route: 048
     Dates: start: 20130902
  39. ASPIRIN. [Concomitant]
     Active Substance: ASPIRIN
     Indication: CORONARY ARTERY DISEASE
  40. FOSFOMYCIN [Concomitant]
     Active Substance: FOSFOMYCIN
     Indication: CYSTITIS
     Route: 048
     Dates: start: 20131118, end: 20131118

REACTIONS (8)
  - Duodenal ulcer [Unknown]
  - General physical health deterioration [Recovered/Resolved]
  - Nausea [Recovered/Resolved]
  - Spinal pain [Unknown]
  - Helicobacter gastritis [Unknown]
  - Upper gastrointestinal haemorrhage [Recovered/Resolved]
  - Decreased appetite [Recovered/Resolved]
  - Vomiting [Recovered/Resolved]

NARRATIVE: CASE EVENT DATE: 20140506
